FAERS Safety Report 19742473 (Version 1)
Quarter: 2021Q3

REPORT INFORMATION
  Report Type: Spontaneous
  Country: GB (occurrence: GB)
  Receive Date: 20210824
  Receipt Date: 20210824
  Transmission Date: 20211014
  Serious: Yes (Other)
  Sender: FDA-Public Use
  Company Number: GB-MYLANLABS-2021M1054458

PATIENT
  Age: 50 Year
  Sex: Female

DRUGS (3)
  1. SUMATRIPTAN. [Suspect]
     Active Substance: SUMATRIPTAN
     Indication: HEADACHE
     Dosage: 50 MILLIGRAM
     Route: 048
     Dates: start: 20170531, end: 20170531
  2. SUMATRIPTAN. [Suspect]
     Active Substance: SUMATRIPTAN
     Indication: VISUAL IMPAIRMENT
  3. SUMATRIPTAN. [Suspect]
     Active Substance: SUMATRIPTAN
     Indication: HYPOAESTHESIA
     Dosage: 50 MILLIGRAM
     Route: 048
     Dates: start: 20170531

REACTIONS (2)
  - Headache [Recovered/Resolved]
  - Medication error [Unknown]
